FAERS Safety Report 8374100-8 (Version None)
Quarter: 2012Q2

REPORT INFORMATION
  Report Type: 
  Country: None (occurrence: None)
  Receive Date: 20120521
  Receipt Date: 20120517
  Transmission Date: 20120825
  Serious: Yes (Other)
  Sender: FDA-Public Use
  Company Number: PHHO2010US10684

PATIENT
  Age: 62 Year
  Sex: Male
  Weight: 83.5 kg

DRUGS (13)
  1. BACTRIM [Concomitant]
     Indication: PROPHYLAXIS
     Dosage: 1 DF, QD
  2. ASPIRIN [Concomitant]
     Indication: CARDIOVASCULAR EVENT PROPHYLAXIS
     Dosage: UNK
     Dates: start: 20060912, end: 20100101
  3. MYFORTIC [Suspect]
     Dosage: 360 MG, QD
     Route: 048
     Dates: start: 20101007, end: 20101223
  4. SIMVASTATIN [Concomitant]
     Indication: HYPERCHOLESTEROLAEMIA
     Dosage: 80 MG, UNK
     Route: 048
  5. CALCIUM CARBONATE [Concomitant]
     Indication: PROPHYLAXIS
     Dosage: 2 DF, UNK
     Route: 048
  6. VITAMIN D [Concomitant]
     Indication: PROPHYLAXIS
     Dosage: 1000 U, QD
     Route: 048
  7. LOVAZA [Concomitant]
     Indication: SUPPLEMENTATION THERAPY
     Dosage: 1 G, QD
     Route: 048
  8. MYFORTIC [Suspect]
     Indication: IMMUNOSUPPRESSION
     Dosage: 360 MG, BID
     Route: 048
     Dates: start: 20090916, end: 20100610
  9. MYFORTIC [Suspect]
     Dosage: 180 MG, QD
     Dates: start: 20101224
  10. MULTI-VITAMINS [Concomitant]
     Indication: SUPPLEMENTATION THERAPY
     Dosage: 1 DF, QD
  11. CELLCEPT [Concomitant]
     Indication: RENAL TRANSPLANT
     Dosage: UNK
     Dates: start: 20081209, end: 20090915
  12. PREDNISONE [Suspect]
     Indication: IMMUNOSUPPRESSION
     Dosage: 5 MG, QD
     Route: 048
     Dates: start: 20090104
  13. NORVASC [Concomitant]
     Indication: HYPERTENSION
     Dosage: 2.5 MG, QD
     Route: 048

REACTIONS (2)
  - SQUAMOUS CELL CARCINOMA [None]
  - TUMOUR INVASION [None]
